FAERS Safety Report 16492222 (Version 4)
Quarter: 2020Q2

REPORT INFORMATION
  Report Type: Spontaneous
  Country: CA (occurrence: CA)
  Receive Date: 20190628
  Receipt Date: 20200428
  Transmission Date: 20200713
  Serious: Yes (Other)
  Sender: FDA-Public Use
  Company Number: CA-SAMSUNG BIOEPIS-SB-2019-15779

PATIENT
  Age: 19 Year
  Sex: Male

DRUGS (6)
  1. INFLIXIMAB [Suspect]
     Active Substance: INFLIXIMAB
     Indication: COLITIS ULCERATIVE
     Route: 042
  2. INFLIXIMAB [Suspect]
     Active Substance: INFLIXIMAB
     Route: 042
  3. AZATHIOPRINE. [Concomitant]
     Active Substance: AZATHIOPRINE
     Indication: PRODUCT USED FOR UNKNOWN INDICATION
     Dosage: UNKNOWN
     Route: 065
  4. AZATHIOPRINE. [Concomitant]
     Active Substance: AZATHIOPRINE
     Route: 048
  5. VANCOMYCIN [Concomitant]
     Active Substance: VANCOMYCIN
     Indication: CLOSTRIDIUM DIFFICILE INFECTION
     Route: 048
  6. FENTANYL. [Concomitant]
     Active Substance: FENTANYL
     Indication: SEDATIVE THERAPY
     Route: 042

REACTIONS (24)
  - Large intestinal ulcer [Recovered/Resolved]
  - Inflammation [Recovered/Resolved]
  - Sneezing [Recovered/Resolved]
  - Product use issue [Recovered/Resolved]
  - Haemorrhoids [Recovered/Resolved]
  - Drug level above therapeutic [Recovered/Resolved]
  - Intentional product use issue [Recovered/Resolved]
  - Off label use [Recovered/Resolved]
  - Therapeutic product effect incomplete [Recovered/Resolved]
  - Blood pressure fluctuation [Recovered/Resolved]
  - Disease recurrence [Recovered/Resolved]
  - Pseudopolyposis [Recovered/Resolved]
  - Inflammatory bowel disease [Recovered/Resolved]
  - Drug level below therapeutic [Recovered/Resolved]
  - Product administration error [Recovered/Resolved]
  - Oropharyngeal pain [Recovered/Resolved]
  - Faecal calprotectin increased [Recovered/Resolved]
  - Inappropriate schedule of product administration [Recovered/Resolved]
  - Body temperature fluctuation [Recovered/Resolved]
  - Clostridium difficile infection [Recovered/Resolved]
  - Hypotension [Recovered/Resolved]
  - Diverticulitis [Recovered/Resolved]
  - Nasal congestion [Recovered/Resolved]
  - Productive cough [Recovered/Resolved]
